FAERS Safety Report 7265073-X (Version None)
Quarter: 2011Q1

REPORT INFORMATION
  Report Type: 
  Country: None (occurrence: None)
  Receive Date: 20110131
  Receipt Date: 20110119
  Transmission Date: 20110831
  Serious: Yes (Other)
  Sender: FDA-Public Use
  Company Number: US-PFIZER INC-2004225439US

PATIENT
  Sex: Female
  Weight: 82 kg

DRUGS (4)
  1. PREMARIN [Suspect]
     Indication: HORMONE REPLACEMENT THERAPY
     Dosage: UNK
     Route: 048
     Dates: start: 19850101, end: 20010101
  2. BENICAR HCT [Concomitant]
     Indication: HYPERTENSION
     Dosage: UNK
     Dates: start: 20000101
  3. FEMHRT [Suspect]
     Indication: HORMONE REPLACEMENT THERAPY
     Dosage: UNK
     Dates: start: 19850101, end: 20010101
  4. PROVERA [Suspect]
     Indication: HORMONE REPLACEMENT THERAPY
     Dosage: UNK
     Route: 048
     Dates: start: 19850101, end: 20010101

REACTIONS (1)
  - BREAST CANCER IN SITU [None]
